FAERS Safety Report 5312284-6 (Version None)
Quarter: 2007Q2

REPORT INFORMATION
  Report Type: 
  Country: None (occurrence: None)
  Receive Date: 20070430
  Receipt Date: 20061103
  Transmission Date: 20071010
  Serious: No
  Sender: FDA-Public Use
  Company Number: 2006UW21668

PATIENT
  Sex: Male

DRUGS (3)
  1. NEXIUM [Suspect]
     Indication: EROSIVE OESOPHAGITIS
     Dosage: START DATE=OFF AND ON FOR SOMETIME
     Route: 048
  2. NEXIUM [Suspect]
     Indication: HIATUS HERNIA
     Dosage: START DATE=OFF AND ON FOR SOMETIME
     Route: 048
  3. DIGESTIVE ENZYMES [Concomitant]

REACTIONS (1)
  - DISCOMFORT [None]
